FAERS Safety Report 7170568-3 (Version None)
Quarter: 2010Q4

REPORT INFORMATION
  Report Type: 
  Country: None (occurrence: None)
  Receive Date: 20101217
  Receipt Date: 20100924
  Transmission Date: 20110411
  Serious: No
  Sender: FDA-Public Use
  Company Number: A0883227A

PATIENT
  Age: 40 Year

DRUGS (1)
  1. LEXIVA [Suspect]
     Route: 065

REACTIONS (1)
  - AMENORRHOEA [None]
